FAERS Safety Report 8620100 (Version 3)
Quarter: 2013Q3

REPORT INFORMATION
  Report Type: Report from Study
  Country: US (occurrence: US)
  Receive Date: 20120618
  Receipt Date: 20130725
  Transmission Date: 20140515
  Serious: Yes (Congenital Anomaly)
  Sender: FDA-Public Use
  Company Number: US-VIIV HEALTHCARE LIMITED-A0981427A

PATIENT
  Sex: 0

DRUGS (2)
  1. COMBIVIR [Suspect]
     Indication: ANTIRETROVIRAL THERAPY
     Route: 064
  2. KALETRA [Suspect]
     Indication: ANTIRETROVIRAL THERAPY
     Route: 064

REACTIONS (2)
  - Hypertrophic cardiomyopathy [Unknown]
  - Foetal exposure during pregnancy [Unknown]
